FAERS Safety Report 4616450-4 (Version None)
Quarter: 2005Q1

REPORT INFORMATION
  Report Type: 
  Country: None (occurrence: None)
  Receive Date: 20050318
  Receipt Date: 20050308
  Transmission Date: 20050727
  Serious: Yes (Other)
  Sender: FDA-Public Use
  Company Number: MED000045

PATIENT
  Age: 74 Year
  Sex: Male

DRUGS (1)
  1. HEPARIN SODIUM AND 0.9% SODIUM CHLORIDE [Suspect]
     Indication: CORONARY ARTERY SURGERY

REACTIONS (8)
  - ANTIBODY TEST POSITIVE [None]
  - ATRIAL FIBRILLATION [None]
  - CARDIAC ARREST [None]
  - DEPENDENCE ON RESPIRATOR [None]
  - FLUID OVERLOAD [None]
  - HEPARIN-INDUCED THROMBOCYTOPENIA TEST [None]
  - PLATELET COUNT DECREASED [None]
  - POST PROCEDURAL COMPLICATION [None]
